FAERS Safety Report 7076238-4 (Version None)
Quarter: 2010Q4

REPORT INFORMATION
  Report Type: 
  Country: None (occurrence: None)
  Receive Date: 20101101
  Receipt Date: 20101019
  Transmission Date: 20110411
  Serious: Yes (Other)
  Sender: FDA-Public Use
  Company Number: BR-US-EMD SERONO, INC.-7023559

PATIENT
  Sex: Female

DRUGS (3)
  1. REBIF [Suspect]
     Indication: RELAPSING-REMITTING MULTIPLE SCLEROSIS
     Route: 058
     Dates: start: 20100520
  2. TEGRETOL [Concomitant]
  3. EDHANOL [Concomitant]

REACTIONS (3)
  - HEADACHE [None]
  - INJECTION SITE HAEMATOMA [None]
  - UTERINE LEIOMYOMA [None]
